FAERS Safety Report 4848625-3 (Version None)
Quarter: 2005Q4

REPORT INFORMATION
  Report Type: 
  Country: None (occurrence: None)
  Receive Date: 20051115
  Receipt Date: 20051007
  Transmission Date: 20060501
  Serious: Yes (Other)
  Sender: FDA-Public Use
  Company Number: 420668

PATIENT
  Age: 58 Year
  Sex: Male

DRUGS (7)
  1. PEGASYS [Suspect]
     Indication: HEPATITIS C VIRUS
     Dosage: 180 MCG 1 PER WEEK SUBCUTANEOUS
     Route: 058
     Dates: start: 20041231
  2. RIBAVIRIN [Suspect]
     Indication: HEPATITIS C VIRUS
     Dosage: 1200 MG DAILY ORAL
     Route: 048
     Dates: start: 20041231
  3. REMICADE [Concomitant]
  4. NITROGLYCERIN [Concomitant]
  5. LEXAPRO [Concomitant]
  6. DILAUDID [Concomitant]
  7. FOSAMAX [Concomitant]

REACTIONS (1)
  - CHEST PAIN [None]
